FAERS Safety Report 17867468 (Version 2)
Quarter: 2020Q2

REPORT INFORMATION
  Report Type: Report from Study
  Country: US (occurrence: US)
  Receive Date: 20200605
  Receipt Date: 20200609
  Transmission Date: 20200714
  Serious: Yes (Hospitalization, Other)
  Sender: FDA-Public Use
  Company Number: US-TEVA-2020-US-1243949

PATIENT
  Age: 57 Year
  Sex: Male

DRUGS (1)
  1. COPAXONE [Suspect]
     Active Substance: GLATIRAMER ACETATE
     Dates: start: 20200520

REACTIONS (8)
  - Multiple sclerosis [Unknown]
  - Feeling hot [Unknown]
  - Infection [Unknown]
  - Memory impairment [Unknown]
  - Flushing [Unknown]
  - Sepsis [Unknown]
  - Pyrexia [Recovering/Resolving]
  - Feeling abnormal [Unknown]

NARRATIVE: CASE EVENT DATE: 202005
